FAERS Safety Report 11789197 (Version 3)
Quarter: 2015Q4

REPORT INFORMATION
  Report Type: Spontaneous
  Country: KR (occurrence: KR)
  Receive Date: 20151201
  Receipt Date: 20151217
  Transmission Date: 20160305
  Serious: Yes (Hospitalization, Other)
  Sender: FDA-Public Use
  Company Number: KR-ASTELLAS-2015US044839

PATIENT
  Age: 84 Year
  Sex: Male

DRUGS (1)
  1. XTANDI [Suspect]
     Active Substance: ENZALUTAMIDE
     Indication: PROSTATE CANCER
     Route: 048
     Dates: start: 20151123, end: 20151123

REACTIONS (3)
  - Prostate cancer [Unknown]
  - Cerebral infarction [Recovering/Resolving]
  - Hydronephrosis [Recovering/Resolving]

NARRATIVE: CASE EVENT DATE: 20151124
